FAERS Safety Report 6078330-X (Version None)
Quarter: 2009Q1

REPORT INFORMATION
  Report Type: 
  Country: None (occurrence: None)
  Receive Date: 20090213
  Receipt Date: 20090205
  Transmission Date: 20090719
  Serious: Yes (Death, Hospitalization)
  Sender: FDA-Public Use
  Company Number: US-GILEAD-2009-0020198

PATIENT
  Sex: Male
  Weight: 92.162 kg

DRUGS (9)
  1. LETAIRIS [Suspect]
     Indication: PULMONARY ARTERIAL HYPERTENSION
     Route: 048
     Dates: start: 20080701, end: 20090126
  2. LETAIRIS [Suspect]
     Route: 048
     Dates: start: 20090126, end: 20090130
  3. VIAGRA [Concomitant]
  4. COUMADIN [Concomitant]
  5. FUROSEMIDE [Concomitant]
  6. NEBIVOLOL [Concomitant]
  7. METOPROLOL TARTRATE [Concomitant]
  8. DIGOXIN [Concomitant]
  9. PHOSLO [Concomitant]

REACTIONS (2)
  - RENAL FAILURE [None]
  - RESPIRATORY FAILURE [None]
